FAERS Safety Report 18734957 (Version 2)
Quarter: 2021Q1

REPORT INFORMATION
  Report Type: Spontaneous
  Country: US (occurrence: US)
  Receive Date: 20210113
  Receipt Date: 20210119
  Transmission Date: 20210419
  Serious: Yes (Other)
  Sender: FDA-Public Use
  Company Number: US-SUNOVION-2021SUN000055

PATIENT
  Age: 28 Year
  Sex: Female

DRUGS (5)
  1. APTIOM [Suspect]
     Active Substance: ESLICARBAZEPINE ACETATE
     Indication: SEIZURE
     Dosage: 600 MG
     Route: 048
  2. LORAZEPAM. [Concomitant]
     Active Substance: LORAZEPAM
     Indication: AURA
     Dosage: 1 MG, AS NECESSARY
     Route: 048
  3. APTIOM [Suspect]
     Active Substance: ESLICARBAZEPINE ACETATE
     Dosage: 1200 MG, QD
     Route: 048
  4. APTIOM [Suspect]
     Active Substance: ESLICARBAZEPINE ACETATE
     Dosage: 1400 MG, QD (TAKING 600 MG+800 MG)
     Route: 048
  5. BRIVIACT [Concomitant]
     Active Substance: BRIVARACETAM
     Indication: SEIZURE
     Dosage: 25 MG, BID
     Route: 048

REACTIONS (3)
  - Generalised tonic-clonic seizure [Recovered/Resolved]
  - Seizure [Unknown]
  - Brain injury [Not Recovered/Not Resolved]
